FAERS Safety Report 7654483-4 (Version None)
Quarter: 2011Q3

REPORT INFORMATION
  Report Type: 
  Country: None (occurrence: None)
  Receive Date: 20110803
  Receipt Date: 20110725
  Transmission Date: 20111222
  Serious: Yes (Hospitalization, Other)
  Sender: FDA-Public Use
  Company Number: US-ASTRAZENECA-2011SE35556

PATIENT
  Age: 51 Year
  Sex: Female
  Weight: 54.9 kg

DRUGS (16)
  1. VITAMIN E [Concomitant]
  2. VITAMIN D [Concomitant]
  3. BACTRIM DS [Concomitant]
     Dosage: TWICE A DAY
  4. NEURONTIN [Concomitant]
  5. MULTIVITAMIN DAILY [Concomitant]
  6. FERROUS SULFATE TAB [Concomitant]
  7. TRAMADOL HCL [Concomitant]
  8. TEGRETOL [Concomitant]
     Dosage: 200 MG AM, 200 MG AT SUPPER AND 100 MG AT NIGHT
  9. TOPAMAX [Concomitant]
  10. LEXAPRO [Concomitant]
  11. FISH OIL [Concomitant]
  12. SUCRALFATE [Concomitant]
  13. NEXIUM [Suspect]
     Route: 048
  14. HYDROCHLOROTHIAZIDE [Concomitant]
  15. TOPAMAX [Concomitant]
  16. VITAMIN B-12 [Concomitant]

REACTIONS (40)
  - GASTROINTESTINAL NECROSIS [None]
  - WOUND COMPLICATION [None]
  - KYPHOSIS [None]
  - JOINT EFFUSION [None]
  - CONSTIPATION [None]
  - SMALL INTESTINAL OBSTRUCTION [None]
  - BREAST MASS [None]
  - GASTROOESOPHAGEAL REFLUX DISEASE [None]
  - ROAD TRAFFIC ACCIDENT [None]
  - ARTHRALGIA [None]
  - DRUG DOSE OMISSION [None]
  - GASTRIC BYPASS [None]
  - OPEN WOUND [None]
  - BACK PAIN [None]
  - SPINAL OSTEOARTHRITIS [None]
  - ERYTHEMA [None]
  - WOUND INFECTION STAPHYLOCOCCAL [None]
  - HYPOKALAEMIA [None]
  - VULVOVAGINAL BURNING SENSATION [None]
  - MIGRAINE [None]
  - RASH [None]
  - STAPHYLOCOCCAL INFECTION [None]
  - MENTAL STATUS CHANGES [None]
  - OEDEMA PERIPHERAL [None]
  - HYPERSENSITIVITY [None]
  - SARCOMA [None]
  - VULVOVAGINAL DISCOMFORT [None]
  - MALAISE [None]
  - DYSURIA [None]
  - VULVOVAGINAL PRURITUS [None]
  - MUSCLE SPASMS [None]
  - IRRITABILITY [None]
  - TEARFULNESS [None]
  - ABDOMINAL PAIN [None]
  - DIARRHOEA [None]
  - PRURITUS [None]
  - CONVULSION [None]
  - ABDOMINAL HERNIA REPAIR [None]
  - BREAST SWELLING [None]
  - TOOTH INFECTION [None]
